FAERS Safety Report 8410704-1 (Version None)
Quarter: 2012Q2

REPORT INFORMATION
  Report Type: 
  Country: None (occurrence: None)
  Receive Date: 20120605
  Receipt Date: 20120524
  Transmission Date: 20120825
  Serious: Yes (Hospitalization, Other)
  Sender: FDA-Public Use
  Company Number: ES-ELI_LILLY_AND_COMPANY-ES201205009207

PATIENT
  Sex: Female
  Weight: 78 kg

DRUGS (7)
  1. MICARDIS HCT [Concomitant]
     Indication: HYPERTENSION
     Dosage: 1 DF, QD
     Route: 048
  2. TRAMADOL HCL [Concomitant]
     Indication: ANALGESIC THERAPY
     Dosage: UNK, PRN
     Route: 048
  3. FORTEO [Suspect]
     Indication: OSTEOPOROSIS
     Dosage: 20 UG, QD
     Route: 058
  4. PREDNISONE [Concomitant]
     Indication: MUSCULAR WEAKNESS
     Dosage: 10 MG, QD
     Route: 048
     Dates: start: 20080101
  5. MESTINON [Concomitant]
     Indication: MUSCULAR WEAKNESS
     Dosage: 60 MG, EVERY 8 HRS
     Route: 048
     Dates: start: 20080101
  6. CLOPIDOGREL [Concomitant]
     Indication: ANTICOAGULANT THERAPY
     Dosage: 75 MG, QD
     Route: 048
     Dates: start: 20120201
  7. RABEPRAZOLE SODIUM [Concomitant]
     Indication: GASTRIC DISORDER
     Dosage: 20 MG, QD
     Route: 048

REACTIONS (4)
  - INTESTINAL POLYP [None]
  - NEPHROLITHIASIS [None]
  - GASTROINTESTINAL HAEMORRHAGE [None]
  - CHOLELITHIASIS [None]
